FAERS Safety Report 6450417-9 (Version None)
Quarter: 2009Q4

REPORT INFORMATION
  Report Type: 
  Country: None (occurrence: None)
  Receive Date: 20091123
  Receipt Date: 20091118
  Transmission Date: 20100525
  Serious: Yes (Death, Hospitalization)
  Sender: FDA-Public Use
  Company Number: US-BRISTOL-MYERS SQUIBB COMPANY-14863252

PATIENT
  Age: 74 Year
  Sex: Female

DRUGS (8)
  1. ORENCIA [Suspect]
  2. PREDNISONE [Concomitant]
  3. METHOTREXATE [Concomitant]
  4. FOLIC ACID [Concomitant]
  5. MINOCYCLINE HCL [Concomitant]
  6. ATACAND [Concomitant]
  7. PROTONIX [Concomitant]
  8. LEXAPRO [Concomitant]

REACTIONS (1)
  - CLOSTRIDIUM DIFFICILE SEPSIS [None]
